FAERS Safety Report 22094890 (Version 1)
Quarter: 2023Q1

REPORT INFORMATION
  Report Type: Spontaneous
  Country: CN (occurrence: CN)
  Receive Date: 20230314
  Receipt Date: 20230314
  Transmission Date: 20230418
  Serious: Yes (Hospitalization)
  Sender: FDA-Public Use
  Company Number: CN-ELI_LILLY_AND_COMPANY-CN202303001169

PATIENT
  Age: 68 Year
  Sex: Male

DRUGS (23)
  1. RAMUCIRUMAB [Suspect]
     Active Substance: RAMUCIRUMAB
     Indication: Neoplasm
     Dosage: 500 MG, SINGLE
     Route: 041
     Dates: start: 20230214, end: 20230214
  2. PACLITAXEL [Suspect]
     Active Substance: PACLITAXEL
     Indication: Neoplasm
     Dosage: 150 MG, SINGLE
     Route: 041
     Dates: start: 20230215, end: 20230215
  3. CATEQUENTINIB DIHYDROCHLORIDE [Suspect]
     Active Substance: CATEQUENTINIB DIHYDROCHLORIDE
     Indication: Neoplasm
     Dosage: 12 MG, DAILY
     Route: 048
     Dates: start: 20230207, end: 20230220
  4. OXALIPLATIN [Concomitant]
     Active Substance: OXALIPLATIN
     Indication: Chemotherapy
     Dosage: 200 MG, SINGLE
     Dates: start: 20220825
  5. OXALIPLATIN [Concomitant]
     Active Substance: OXALIPLATIN
     Dosage: 200 MG, SINGLE
     Dates: start: 20220916
  6. OXALIPLATIN [Concomitant]
     Active Substance: OXALIPLATIN
     Dosage: 200 MG, SINGLE
     Dates: start: 20221009
  7. OXALIPLATIN [Concomitant]
     Active Substance: OXALIPLATIN
     Dosage: 200 MG, SINGLE
     Dates: start: 20221029
  8. OXALIPLATIN [Concomitant]
     Active Substance: OXALIPLATIN
     Dosage: 200 MG, SINGLE
     Dates: start: 20221122
  9. TEGAFUR [Concomitant]
     Active Substance: TEGAFUR
     Indication: Chemotherapy
     Dosage: UNK
     Dates: start: 20220825
  10. TEGAFUR [Concomitant]
     Active Substance: TEGAFUR
     Dosage: UNK
     Dates: start: 20220916
  11. TEGAFUR [Concomitant]
     Active Substance: TEGAFUR
     Dosage: UNK
     Dates: start: 20221009
  12. TEGAFUR [Concomitant]
     Active Substance: TEGAFUR
     Dosage: UNK
     Dates: start: 20221029
  13. TEGAFUR [Concomitant]
     Active Substance: TEGAFUR
     Dosage: UNK
     Dates: start: 20221122
  14. GIMERACIL [Concomitant]
     Active Substance: GIMERACIL
     Indication: Chemotherapy
     Dosage: UNK
     Dates: start: 20220825
  15. GIMERACIL [Concomitant]
     Active Substance: GIMERACIL
     Dosage: UNK
     Dates: start: 20220916
  16. GIMERACIL [Concomitant]
     Active Substance: GIMERACIL
     Dosage: UNK
     Dates: start: 20221009
  17. GIMERACIL [Concomitant]
     Active Substance: GIMERACIL
     Dosage: UNK
     Dates: start: 20221029
  18. GIMERACIL [Concomitant]
     Active Substance: GIMERACIL
     Dosage: UNK
     Dates: start: 20221122
  19. OTERACIL POTASSIUM [Concomitant]
     Active Substance: OTERACIL POTASSIUM
     Indication: Chemotherapy
     Dosage: 20 MG, BID
     Dates: start: 20220825
  20. OTERACIL POTASSIUM [Concomitant]
     Active Substance: OTERACIL POTASSIUM
     Dosage: 20 MG, BID
     Dates: start: 20220916
  21. OTERACIL POTASSIUM [Concomitant]
     Active Substance: OTERACIL POTASSIUM
     Dosage: 20 MG, BID
     Dates: start: 20221009
  22. OTERACIL POTASSIUM [Concomitant]
     Active Substance: OTERACIL POTASSIUM
     Dosage: 20 MG, BID
     Dates: start: 20221029
  23. OTERACIL POTASSIUM [Concomitant]
     Active Substance: OTERACIL POTASSIUM
     Dosage: 20 MG, BID
     Dates: start: 20221122

REACTIONS (1)
  - Myelosuppression [Recovering/Resolving]

NARRATIVE: CASE EVENT DATE: 20230222
